FAERS Safety Report 7258605-9 (Version None)
Quarter: 2011Q1

REPORT INFORMATION
  Report Type: 
  Country: None (occurrence: None)
  Receive Date: 20110129
  Receipt Date: 20100514
  Transmission Date: 20110831
  Serious: No
  Sender: FDA-Public Use
  Company Number: US-ABBOTT-10P-163-0645500-00

PATIENT
  Sex: Female

DRUGS (2)
  1. HUMIRA [Suspect]
     Indication: CROHN'S DISEASE
     Dates: start: 20090301, end: 20100301
  2. PENTASA [Concomitant]
     Indication: CROHN'S DISEASE
     Dosage: DAILY

REACTIONS (2)
  - DIARRHOEA [None]
  - ABDOMINAL PAIN [None]
